FAERS Safety Report 9146605 (Version 3)
Quarter: 2014Q1

REPORT INFORMATION
  Report Type: Report from Study
  Country: CA (occurrence: CA)
  Receive Date: 20130307
  Receipt Date: 20140203
  Transmission Date: 20141002
  Serious: Yes (Other)
  Sender: FDA-Public Use
  Company Number: CA-JNJFOC-20130215789

PATIENT
  Sex: Male
  Weight: 84 kg

DRUGS (11)
  1. REMICADE [Suspect]
     Indication: ANKYLOSING SPONDYLITIS
     Route: 042
     Dates: start: 20080904
  2. REMICADE [Suspect]
     Indication: CROHN^S DISEASE
     Route: 042
     Dates: start: 20080904
  3. IMURAN [Concomitant]
     Route: 065
  4. SYNTHROID [Concomitant]
     Route: 065
  5. ZOPICLONE [Concomitant]
     Route: 065
  6. VIAGRA [Concomitant]
     Route: 065
  7. ADALAT XL [Concomitant]
     Route: 065
  8. OMEPRAZOLE [Concomitant]
     Route: 065
  9. PREDNISONE [Concomitant]
     Route: 065
  10. ALTACE [Concomitant]
     Route: 065
  11. FOSAMAX [Concomitant]
     Route: 065

REACTIONS (1)
  - Basal cell carcinoma [Recovering/Resolving]
